FAERS Safety Report 10971246 (Version 1)
Quarter: 2015Q1

REPORT INFORMATION
  Report Type: Spontaneous
  Country: US (occurrence: None)
  Receive Date: 20150226
  Receipt Date: 20150226
  Transmission Date: 20150721
  Serious: No
  Sender: FDA-Public Use
  Company Number: TPA2009A03190

PATIENT
  Age: 59 Year
  Sex: Female
  Weight: 82.1 kg

DRUGS (4)
  1. MOBIC [Concomitant]
     Active Substance: MELOXICAM
  2. CARVEDILOL. [Concomitant]
     Active Substance: CARVEDILOL
  3. ULORIC [Suspect]
     Active Substance: FEBUXOSTAT
     Indication: GOUT
     Route: 048
     Dates: start: 20090916, end: 20091002
  4. VITAMIN B12 [Suspect]
     Active Substance: CYANOCOBALAMIN
     Indication: VITAMIN B12 DEFICIENCY
     Dates: start: 20090916

REACTIONS (4)
  - Pruritus generalised [None]
  - Rash generalised [None]
  - Hypersensitivity [None]
  - Swelling face [None]

NARRATIVE: CASE EVENT DATE: 20091002
